FAERS Safety Report 9667696 (Version 1)
Quarter: 2013Q4

REPORT INFORMATION
  Report Type: Spontaneous
  Country: US (occurrence: US)
  Receive Date: 20131101
  Receipt Date: 20131101
  Transmission Date: 20140711
  Serious: No
  Sender: FDA-Public Use
  Company Number: US-SAVIENT-2012S1000054

PATIENT
  Age: 60 Year
  Sex: Male

DRUGS (1)
  1. KRYSTEXXA INJECTION [Suspect]
     Indication: PRODUCT USED FOR UNKNOWN INDICATION
     Route: 042
     Dates: end: 2012

REACTIONS (1)
  - Therapeutic response decreased [Unknown]
